FAERS Safety Report 7008083-X (Version None)
Quarter: 2010Q3

REPORT INFORMATION
  Report Type: 
  Country: None (occurrence: None)
  Receive Date: 20100922
  Receipt Date: 20100915
  Transmission Date: 20110219
  Serious: Yes (Other)
  Sender: FDA-Public Use
  Company Number: US-JNJCH-2010021256

PATIENT
  Age: 67 Year
  Sex: Female
  Weight: 83 kg

DRUGS (3)
  1. ZYRTEC [Suspect]
     Indication: SEASONAL ALLERGY
     Route: 048
  2. CETIRIZINE HYDROCHLORIDE [Suspect]
     Indication: HYPERSENSITIVITY
     Dosage: TEXT:ONE
     Route: 065
  3. TENORMIN [Concomitant]
     Indication: HYPERTENSION
     Dosage: TEXT:ONE ONCE A DAY
     Route: 065

REACTIONS (3)
  - EXPIRED DRUG ADMINISTERED [None]
  - HYPERSENSITIVITY [None]
  - WRONG DRUG ADMINISTERED [None]
